FAERS Safety Report 16782946 (Version 2)
Quarter: 2020Q1

REPORT INFORMATION
  Report Type: Spontaneous
  Country: US (occurrence: US)
  Receive Date: 20190906
  Receipt Date: 20200302
  Transmission Date: 20200409
  Serious: No
  Sender: FDA-Public Use
  Company Number: US-ARRAY-2019-06052

PATIENT

DRUGS (5)
  1. PREDNISONE. [Concomitant]
     Active Substance: PREDNISONE
     Indication: PRODUCT USED FOR UNKNOWN INDICATION
  2. BRAFTOVI [Suspect]
     Active Substance: ENCORAFENIB
     Indication: BRAIN NEOPLASM MALIGNANT
     Dosage: 300 MG, QD
     Route: 048
     Dates: start: 20190624, end: 20190627
  3. BRAFTOVI [Suspect]
     Active Substance: ENCORAFENIB
     Dosage: UNK
     Route: 048
  4. MEKTOVI [Suspect]
     Active Substance: BINIMETINIB
     Indication: BRAIN NEOPLASM MALIGNANT
     Dosage: 45 MG, BID
     Route: 048
     Dates: start: 20190624
  5. DILANTIN [Concomitant]
     Active Substance: PHENYTOIN
     Indication: PRODUCT USED FOR UNKNOWN INDICATION

REACTIONS (8)
  - Insomnia [Recovered/Resolved]
  - Headache [Recovered/Resolved]
  - Epistaxis [Unknown]
  - Rash [Recovered/Resolved]
  - Confusional state [Recovered/Resolved]
  - Acne [Recovered/Resolved]
  - Product use in unapproved indication [Unknown]
  - Acrochordon [Unknown]

NARRATIVE: CASE EVENT DATE: 201906
